FAERS Safety Report 15563541 (Version 1)
Quarter: 2018Q4

REPORT INFORMATION
  Report Type: Spontaneous
  Country: CA (occurrence: CA)
  Receive Date: 20181029
  Receipt Date: 20181029
  Transmission Date: 20190205
  Serious: Yes (Hospitalization)
  Sender: FDA-Public Use
  Company Number: CA-UPSHER-SMITH LABORATORIES, LLC-2018USL00517

PATIENT
  Age: 39 Year
  Sex: Male

DRUGS (6)
  1. OXYCODONE IR [Concomitant]
     Active Substance: OXYCODONE
     Dosage: 45 MG, 3X/DAY
     Route: 048
  2. BOLDENONE UNDECYCLONATE [Suspect]
     Active Substance: BOLDENONE UNDECYLENATE
     Dosage: 250 MG, 1X/WEEK
     Route: 030
  3. CYANOCOBALAMIN. [Concomitant]
     Active Substance: CYANOCOBALAMIN
     Dosage: 250 MG, 1X/WEEK
     Route: 030
  4. MARIJUANA [Concomitant]
     Active Substance: CANNABIS SATIVA SUBSP. INDICA TOP
     Dosage: 1 G, 1X/DAY
  5. INSULIN GLARGINE [Concomitant]
     Active Substance: INSULIN GLARGINE
     Dosage: 100 U ^QHS^
     Route: 058
  6. TESTOSTERONE. [Suspect]
     Active Substance: TESTOSTERONE
     Dosage: 400 MG (100 MG CYPIONATE, 100 MG ENANTHATE, 200 MG DECONATE), 1X/WEEK
     Route: 030

REACTIONS (5)
  - Cardiac failure congestive [Recovering/Resolving]
  - Drug abuse [Unknown]
  - Respiratory failure [Recovered/Resolved]
  - Congestive cardiomyopathy [Recovering/Resolving]
  - Hypertrophic cardiomyopathy [Unknown]
